FAERS Safety Report 7761451-0 (Version None)
Quarter: 2011Q3

REPORT INFORMATION
  Report Type: 
  Country: None (occurrence: None)
  Receive Date: 20110915
  Receipt Date: 20110902
  Transmission Date: 20111222
  Serious: Yes (Disabling)
  Sender: FDA-Public Use
  Company Number: 2011AP001955

PATIENT
  Age: 82 Year
  Sex: Female

DRUGS (10)
  1. ATENOLOL [Concomitant]
  2. AMLODIPINE [Suspect]
     Indication: PRODUCT USED FOR UNKNOWN INDICATION
  3. QUININE SULFATE [Concomitant]
  4. VERAPAMIL HYDROCHLORIDE [Concomitant]
  5. CLOBETASOL PROPIONATE [Concomitant]
  6. DICLOFENAC SODIIUM (DICLOFENAC SODIUM) [Concomitant]
  7. MELOXICAM [Concomitant]
  8. TRAMADOL HCL [Concomitant]
  9. LISINOPRIL [Concomitant]
  10. NAPROXEN [Concomitant]

REACTIONS (3)
  - SYNCOPE [None]
  - NAUSEA [None]
  - VISION BLURRED [None]
